FAERS Safety Report 6239553-X (Version None)
Quarter: 2009Q2

REPORT INFORMATION
  Report Type: 
  Country: None (occurrence: None)
  Receive Date: 20090618
  Receipt Date: 20090618
  Transmission Date: 20091009
  Serious: Yes (Disabling)
  Sender: FDA-Public Use
  Company Number: None

PATIENT
  Age: 26 Year
  Sex: Male
  Weight: 91.6266 kg

DRUGS (1)
  1. ZICAM INTRANASAL GEL MATRIXX INITIATIVES [Suspect]
     Indication: NASOPHARYNGITIS
     Dosage: 1 1
     Dates: start: 20051230, end: 20051230

REACTIONS (1)
  - HYPOSMIA [None]
